FAERS Safety Report 21334119 (Version 1)
Quarter: 2022Q3

REPORT INFORMATION
  Report Type: Spontaneous
  Country: IE (occurrence: IE)
  Receive Date: 20220914
  Receipt Date: 20220914
  Transmission Date: 20221027
  Serious: Yes (Hospitalization)
  Sender: FDA-Public Use
  Company Number: IE-SERVIER-S22009213

PATIENT
  Sex: Male

DRUGS (1)
  1. ONIVYDE [Suspect]
     Active Substance: IRINOTECAN HYDROCHLORIDE
     Indication: Pancreatic carcinoma metastatic
     Dosage: 56 MG, EVERY 2 WEEKS
     Route: 065
     Dates: start: 20220803

REACTIONS (4)
  - Infection [Recovered/Resolved]
  - Nausea [Unknown]
  - Diarrhoea [Unknown]
  - Ascites [Unknown]
